FAERS Safety Report 13374123 (Version 1)
Quarter: 2017Q1

REPORT INFORMATION
  Report Type: Spontaneous
  Country: US (occurrence: US)
  Receive Date: 20170325
  Receipt Date: 20170325
  Transmission Date: 20170429
  Serious: Yes (Hospitalization)
  Sender: FDA-Public Use
  Company Number: None

PATIENT
  Age: 76 Year
  Sex: Male
  Weight: 62.1 kg

DRUGS (1)
  1. ATENOLOL. [Suspect]
     Active Substance: ATENOLOL
     Indication: HYPERTENSION
     Route: 048
     Dates: start: 20090713, end: 20170320

REACTIONS (7)
  - Fall [None]
  - Acute kidney injury [None]
  - Dizziness [None]
  - Asthenia [None]
  - Bradycardia [None]
  - Hypotension [None]
  - Dehydration [None]

NARRATIVE: CASE EVENT DATE: 20170320
